FAERS Safety Report 9128543 (Version 2)
Quarter: 2013Q1

REPORT INFORMATION
  Report Type: Spontaneous
  Country: FI (occurrence: FI)
  Receive Date: 20130228
  Receipt Date: 20130307
  Transmission Date: 20140127
  Serious: Yes (Death)
  Sender: FDA-Public Use
  Company Number: FI-ROCHE-1196040

PATIENT
  Age: 60 Year
  Sex: Female

DRUGS (1)
  1. MABTHERA [Suspect]
     Indication: POLYMYOSITIS
     Route: 065
     Dates: start: 2009, end: 201210

REACTIONS (1)
  - Death [Fatal]
